FAERS Safety Report 7569334-6 (Version None)
Quarter: 2011Q2

REPORT INFORMATION
  Report Type: 
  Country: None (occurrence: None)
  Receive Date: 20110623
  Receipt Date: 20110617
  Transmission Date: 20111010
  Serious: Yes (Hospitalization)
  Sender: FDA-Public Use
  Company Number: FR-PFIZER INC-2011101634

PATIENT
  Age: 35 Year
  Sex: Male

DRUGS (2)
  1. IBUPROFEN [Suspect]
     Indication: BRONCHITIS
     Dosage: UNKNOWN
     Route: 048
     Dates: start: 20110413, end: 20110422
  2. AMOXICILLIN [Suspect]
     Indication: BRONCHITIS
     Dosage: UNKNOWN
     Route: 048
     Dates: start: 20110413, end: 20110422

REACTIONS (2)
  - BLOOD PRESSURE DECREASED [None]
  - GRAND MAL CONVULSION [None]
